FAERS Safety Report 4971564-4 (Version None)
Quarter: 2006Q2

REPORT INFORMATION
  Report Type: 
  Country: None (occurrence: None)
  Receive Date: 20060413
  Receipt Date: 20060301
  Transmission Date: 20061013
  Serious: Yes (Hospitalization)
  Sender: FDA-Public Use
  Company Number: PHHO2006FR03730

PATIENT
  Age: 70 Year
  Sex: Female

DRUGS (13)
  1. LETROZOLE [Suspect]
     Indication: BREAST CANCER METASTATIC
     Dosage: 2.5 MG, QD
     Route: 048
     Dates: start: 20050124, end: 20051208
  2. SOLUPRED [Concomitant]
     Dosage: 70MG/DAY
  3. CRESTOR [Concomitant]
  4. SMECTA [Concomitant]
  5. LASILIX [Concomitant]
  6. TENORMIN [Concomitant]
  7. TILDIEM [Concomitant]
  8. LIPANOR [Concomitant]
  9. ADANCOR [Concomitant]
  10. DI-ANTALVIC [Concomitant]
  11. ALDOMET [Concomitant]
  12. AMARYL [Concomitant]
  13. ASPEGIC 1000 [Concomitant]

REACTIONS (10)
  - CROHN'S DISEASE [None]
  - DIARRHOEA [None]
  - ENTERITIS [None]
  - ERYTHEMA [None]
  - GASTROINTESTINAL INFLAMMATION [None]
  - GRANULOMA [None]
  - INTESTINAL ULCER [None]
  - OEDEMA [None]
  - PAIN [None]
  - PROCTALGIA [None]
